FAERS Safety Report 17846709 (Version 1)
Quarter: 2020Q2

REPORT INFORMATION
  Report Type: Spontaneous
  Country: US (occurrence: US)
  Receive Date: 20200601
  Receipt Date: 20200601
  Transmission Date: 20200714
  Serious: No
  Sender: FDA-Public Use
  Company Number: US-SA-2020SA137766

PATIENT
  Age: 74 Year
  Sex: Female

DRUGS (2)
  1. SOLIQUA 100/33 [Suspect]
     Active Substance: INSULIN GLARGINE\LIXISENATIDE
     Indication: TYPE 2 DIABETES MELLITUS
     Dosage: UP TO 30 UNITS
  2. SOLIQUA 100/33 [Suspect]
     Active Substance: INSULIN GLARGINE\LIXISENATIDE
     Dosage: INCREASING ONE UNIT PER DAY BECAUSE HER BLOOD SUGAR IS NOT DOWN ENOUGH

REACTIONS (2)
  - Intentional product use issue [Unknown]
  - Blood glucose abnormal [Unknown]
